FAERS Safety Report 11962386 (Version 1)
Quarter: 2016Q1

REPORT INFORMATION
  Report Type: Spontaneous
  Country: FR (occurrence: FR)
  Receive Date: 20160126
  Receipt Date: 20160126
  Transmission Date: 20160526
  Serious: Yes (Hospitalization)
  Sender: FDA-Public Use
  Company Number: FR-WATSON-2016-01337

PATIENT
  Age: 77 Year
  Sex: Female

DRUGS (4)
  1. GEMCITABINE [Suspect]
     Active Substance: GEMCITABINE\GEMCITABINE HYDROCHLORIDE
     Indication: ENDOCARDITIS
     Dosage: UNK UNK, UNKNOWN
     Route: 042
     Dates: start: 20151210, end: 20151214
  2. CEFTRIAXONE PANPHARMA [Suspect]
     Active Substance: CEFTRIAXONE
     Indication: ENDOCARDITIS
     Dosage: UNK UNK, UNKNOWN
     Route: 042
     Dates: start: 20151027, end: 20151214
  3. LEVOFLOXACINE ACTAVIS [Suspect]
     Active Substance: LEVOFLOXACIN
     Indication: ENDOCARDITIS
     Dosage: UNK UNK, UNKNOWN
     Route: 042
     Dates: start: 20151105, end: 20151221
  4. PIPERACILLINE / TAZOBACTAM MYLAN [Suspect]
     Active Substance: PIPERACILLIN SODIUM\TAZOBACTAM SODIUM
     Indication: ENDOCARDITIS
     Dosage: 4 G, QOD
     Route: 042
     Dates: start: 20151214, end: 20151227

REACTIONS (3)
  - Acute kidney injury [Recovering/Resolving]
  - Eosinophilia [Recovered/Resolved]
  - Erythema [Recovered/Resolved]

NARRATIVE: CASE EVENT DATE: 20151217
